FAERS Safety Report 9110234 (Version 4)
Quarter: 2013Q1

REPORT INFORMATION
  Report Type: Spontaneous
  Country: JP (occurrence: JP)
  Receive Date: 20130222
  Receipt Date: 20130312
  Transmission Date: 20140127
  Serious: Yes (Hospitalization)
  Sender: FDA-Public Use
  Company Number: JP-JNJFOC-20130206459

PATIENT
  Age: 53 Year
  Sex: Female

DRUGS (3)
  1. DUROTEP MT [Suspect]
     Indication: PAIN
     Route: 062
  2. DUROTEP MT [Suspect]
     Indication: PAIN
     Dosage: 2 X 100 UG/HR PATCHES
     Route: 062
  3. DUROTEP MT [Suspect]
     Indication: PAIN
     Route: 062
     Dates: start: 201210

REACTIONS (4)
  - Pneumonia [Recovered/Resolved]
  - Wrong technique in drug usage process [Unknown]
  - Inappropriate schedule of drug administration [Unknown]
  - Treatment noncompliance [Unknown]
